FAERS Safety Report 25549096 (Version 1)
Quarter: 2025Q3

REPORT INFORMATION
  Report Type: Spontaneous
  Country: JP (occurrence: JP)
  Receive Date: 20250714
  Receipt Date: 20250714
  Transmission Date: 20251021
  Serious: Yes (Other)
  Sender: ROCHE
  Company Number: JP-CHUGAI-2025016399

PATIENT
  Age: 84 Year
  Sex: Female

DRUGS (1)
  1. VABYSMO [Suspect]
     Active Substance: FARICIMAB-SVOA
     Indication: Retinal vein occlusion
     Route: 031
     Dates: start: 20241217, end: 20241217

REACTIONS (1)
  - Macular ischaemia [Not Recovered/Not Resolved]

NARRATIVE: CASE EVENT DATE: 20250319
